FAERS Safety Report 10154876 (Version 1)
Quarter: 2014Q2

REPORT INFORMATION
  Report Type: Spontaneous
  Country: IT (occurrence: IT)
  Receive Date: 20140506
  Receipt Date: 20140506
  Transmission Date: 20141212
  Serious: Yes (Other)
  Sender: FDA-Public Use
  Company Number: IT-SA-2014SA053639

PATIENT
  Age: 48 Year
  Sex: Female
  Weight: 60 kg

DRUGS (1)
  1. FERLIXIT [Suspect]
     Indication: IRON DEFICIENCY ANAEMIA
     Dosage: FORM:SOLUTION FOR ORAL AND INTRAVENOUS USE
     Route: 042
     Dates: start: 20140414, end: 20140416

REACTIONS (2)
  - Muscle rigidity [Recovering/Resolving]
  - Musculoskeletal pain [Recovering/Resolving]
